FAERS Safety Report 11974280 (Version 1)
Quarter: 2016Q1

REPORT INFORMATION
  Report Type: Report from Study
  Country: US (occurrence: US)
  Receive Date: 20160128
  Receipt Date: 20160128
  Transmission Date: 20160526
  Serious: No
  Sender: FDA-Public Use
  Company Number: US-ABBVIE-15K-163-1400838-00

PATIENT
  Age: 38 Year
  Sex: Male

DRUGS (2)
  1. HUMIRA [Suspect]
     Active Substance: ADALIMUMAB
     Indication: COLITIS ULCERATIVE
     Dosage: ON DAY 1
     Route: 058
     Dates: start: 20150519, end: 20150519
  2. HUMIRA [Suspect]
     Active Substance: ADALIMUMAB
     Dosage: ON DAY 15
     Route: 058

REACTIONS (3)
  - Injection site reaction [Unknown]
  - Injection site pain [Unknown]
  - Injection site bruising [Unknown]

NARRATIVE: CASE EVENT DATE: 201505
